FAERS Safety Report 4835870-6 (Version None)
Quarter: 2005Q4

REPORT INFORMATION
  Report Type: 
  Country: None (occurrence: None)
  Receive Date: 20051123
  Receipt Date: 20050316
  Transmission Date: 20060501
  Serious: Yes (Hospitalization, Other)
  Sender: FDA-Public Use
  Company Number: 200510828JP

PATIENT
  Age: 56 Year
  Sex: Female
  Weight: 46 kg

DRUGS (23)
  1. ARAVA [Suspect]
     Indication: RHEUMATOID ARTHRITIS
     Route: 048
     Dates: start: 20031219, end: 20031219
  2. ARAVA [Suspect]
     Route: 048
     Dates: start: 20031220, end: 20040122
  3. ARAVA [Suspect]
     Route: 048
     Dates: start: 20040123, end: 20040205
  4. PREDNISOLONE [Suspect]
     Indication: RHEUMATOID ARTHRITIS
     Route: 048
     Dates: start: 20031205, end: 20041203
  5. PREDNISOLONE [Suspect]
     Route: 048
     Dates: start: 20031204, end: 20040204
  6. PREDNISOLONE [Concomitant]
     Route: 048
     Dates: start: 20031204, end: 20040204
  7. PREDNISOLONE [Concomitant]
     Route: 048
     Dates: start: 20021205, end: 20031203
  8. PREDNISOLONE [Concomitant]
     Route: 048
     Dates: start: 20040205
  9. LOXONIN [Concomitant]
     Indication: RHEUMATOID ARTHRITIS
     Route: 048
     Dates: start: 20021205
  10. SELBEX [Concomitant]
     Indication: PROPHYLAXIS AGAINST GASTROINTESTINAL ULCER
     Route: 048
     Dates: start: 20021205
  11. BIOFERMIN [Concomitant]
     Indication: GASTROINTESTINAL DISORDER
     Route: 048
     Dates: start: 20021205
  12. GASTER [Concomitant]
     Indication: PROPHYLAXIS AGAINST GASTROINTESTINAL ULCER
     Route: 048
     Dates: start: 20051205
  13. FERROMIA [Concomitant]
     Indication: ANAEMIA
     Route: 048
     Dates: start: 20030508
  14. KETOPROFEN [Concomitant]
     Indication: RHEUMATOID ARTHRITIS
     Dates: start: 20021205
  15. MUCODYNE [Concomitant]
     Indication: BRONCHIECTASIS
     Route: 048
     Dates: start: 20030508
  16. BONALON [Concomitant]
     Indication: OSTEOPOROSIS
     Route: 048
     Dates: start: 20030508
  17. LENDORMIN [Concomitant]
     Indication: INSOMNIA
     Dosage: DOSE: PER-REQUEST MEDICATION FOR 7 TIMES
     Route: 048
     Dates: start: 20031225, end: 20040105
  18. CYANOCOBALAMIN [Concomitant]
     Indication: PARAESTHESIA
     Route: 062
     Dates: start: 20030225
  19. VITANEURIN [Concomitant]
     Indication: PARAESTHESIA
     Dosage: DOSE: 3 CAPSULES A DAY
     Route: 048
  20. STRONG NEO-MINOPHAGEN C [Concomitant]
     Dates: start: 20040510
  21. INSULIN [Concomitant]
     Indication: DIABETES MELLITUS
  22. SULFONAMIDES, UREA DERIVATIVES [Concomitant]
  23. METHOTREXATE [Concomitant]

REACTIONS (8)
  - ALANINE AMINOTRANSFERASE INCREASED [None]
  - ASPARTATE AMINOTRANSFERASE INCREASED [None]
  - DIABETES MELLITUS [None]
  - GAMMA-GLUTAMYLTRANSFERASE INCREASED [None]
  - HEPATIC FUNCTION ABNORMAL [None]
  - HEPATITIS CHRONIC ACTIVE [None]
  - PARAESTHESIA [None]
  - RHEUMATOID ARTHRITIS [None]
